FAERS Safety Report 15315803 (Version 2)
Quarter: 2018Q3

REPORT INFORMATION
  Report Type: Spontaneous
  Country: US (occurrence: US)
  Receive Date: 20180824
  Receipt Date: 20180824
  Transmission Date: 20181010
  Serious: No
  Sender: FDA-Public Use
  Company Number: US-ASTRAZENECA-2018SE95030

PATIENT
  Age: 75 Year
  Sex: Male
  Weight: 99.8 kg

DRUGS (6)
  1. PULMICORT FLEXHALER [Suspect]
     Active Substance: BUDESONIDE
     Indication: MULTIPLE ALLERGIES
     Dosage: PRESCRIBED DOSE? 180 MCG TWO TIMES A DAY, DOSE AS USED? ABOUT EVERY THREE DAYS AS TOLERATED
     Route: 055
  2. ALBUTEROL. [Concomitant]
     Active Substance: ALBUTEROL
     Indication: DYSPNOEA
     Dosage: TWO PUFFS TWICE A DAY
     Route: 055
  3. MONTELUKAST [Concomitant]
     Active Substance: MONTELUKAST SODIUM
     Indication: MULTIPLE ALLERGIES
  4. SINGULAIR [Concomitant]
     Active Substance: MONTELUKAST SODIUM
  5. BEVESPI AEROSPHERE [Suspect]
     Active Substance: FORMOTEROL FUMARATE\GLYCOPYRROLATE
     Indication: CHRONIC OBSTRUCTIVE PULMONARY DISEASE
     Dosage: 9/4.8MCG TWO INHALATIONS TWICE A DAY
     Route: 055
  6. ALBUTEROL. [Concomitant]
     Active Substance: ALBUTEROL
     Indication: INHALATION THERAPY
     Dosage: TWO PUFFS TWICE A DAY
     Route: 055

REACTIONS (15)
  - Product use in unapproved indication [Not Recovered/Not Resolved]
  - Multiple allergies [Not Recovered/Not Resolved]
  - Product use issue [Not Recovered/Not Resolved]
  - Glossitis [Not Recovered/Not Resolved]
  - Intentional product misuse [Not Recovered/Not Resolved]
  - Chronic obstructive pulmonary disease [Not Recovered/Not Resolved]
  - Oral pain [Not Recovered/Not Resolved]
  - Off label use [Unknown]
  - Paraesthesia oral [Recovered/Resolved]
  - Dyspnoea [Not Recovered/Not Resolved]
  - Lip swelling [Recovered/Resolved]
  - Bronchial secretion retention [Not Recovered/Not Resolved]
  - Dysphonia [Not Recovered/Not Resolved]
  - Cataract [Not Recovered/Not Resolved]
  - Macular degeneration [Not Recovered/Not Resolved]

NARRATIVE: CASE EVENT DATE: 2018
